FAERS Safety Report 20472342 (Version 1)
Quarter: 2022Q1

REPORT INFORMATION
  Report Type: Spontaneous
  Country: US (occurrence: US)
  Receive Date: 20220215
  Receipt Date: 20220215
  Transmission Date: 20220423
  Serious: Yes (Other)
  Sender: FDA-Public Use
  Company Number: US-MLMSERVICE-20220131-3341867-2

PATIENT
  Age: 59 Year
  Sex: Female

DRUGS (3)
  1. LORAZEPAM [Suspect]
     Active Substance: LORAZEPAM
     Indication: Alcohol use disorder
     Dosage: 2 MILLIGRAM, ONCE A DAY (REDUCED BY 25% EVERY 3 TO 4 WEEKS)
     Route: 065
  2. LORAZEPAM [Suspect]
     Active Substance: LORAZEPAM
     Indication: Drug abuse
  3. LORAZEPAM [Suspect]
     Active Substance: LORAZEPAM
     Indication: Substance use

REACTIONS (3)
  - Drug withdrawal syndrome [Unknown]
  - Depression [Unknown]
  - Insomnia [Unknown]
